FAERS Safety Report 8880366 (Version 1)
Quarter: 2012Q4

REPORT INFORMATION
  Report Type: 
  Country: US (occurrence: US)
  Receive Date: 20121031
  Receipt Date: 20121031
  Transmission Date: 20130627
  Serious: No
  Sender: FDA-Public Use
  Company Number: US-BAYER-2012-113463

PATIENT

DRUGS (2)
  1. IBUPROFEN [Concomitant]
     Dosage: 4 DF, UNK
  2. ALEVE CAPLET/TABLET,MIDOL EXTENDED RELIEF CAPLET [Suspect]
     Indication: HEADACHE
     Dosage: 3 DF, UNK

REACTIONS (2)
  - Nausea [None]
  - Headache [None]
